FAERS Safety Report 19717812 (Version 3)
Quarter: 2021Q3

REPORT INFORMATION
  Report Type: Spontaneous
  Country: DE (occurrence: DE)
  Receive Date: 20210819
  Receipt Date: 20210917
  Transmission Date: 20211014
  Serious: Yes (Other)
  Sender: FDA-Public Use
  Company Number: NVSC2021DE181377

PATIENT
  Age: 86 Year
  Sex: Male

DRUGS (6)
  1. ACECOMB [Concomitant]
     Active Substance: HYDROCHLOROTHIAZIDE\LISINOPRIL
     Indication: HYPERTENSION
     Dosage: UNK
     Route: 065
  2. DOXAGAMMA [Concomitant]
     Active Substance: DOXAZOSIN MESYLATE
     Indication: HYPERTENSION
     Dosage: UNK UNK, BID(1?1?0)
     Route: 065
  3. ATORVASTATIN HEXAL 10 MG FILMTABLETTEN [Suspect]
     Active Substance: ATORVASTATIN CALCIUM
     Indication: LIPIDS INCREASED
     Dosage: 1 DF, QD (0?0?1)
     Route: 065
     Dates: start: 20210804, end: 20210804
  4. STANGYL TROPFEN [Concomitant]
     Indication: SLEEP DISORDER
     Dosage: UNK, QD (4?8 DROPS)
     Route: 065
  5. ATORVASTATIN HEXAL 10 MG FILMTABLETTEN [Suspect]
     Active Substance: ATORVASTATIN CALCIUM
     Dosage: 0.5 DF, QD (0?0?1/2)
     Route: 065
     Dates: start: 20210810
  6. STANGYL TROPFEN [Concomitant]
     Dosage: UNK UNK, QD (4?6 DROPS 0?0?1)
     Route: 065

REACTIONS (10)
  - Wrong technique in product usage process [Unknown]
  - Vomiting [Recovered/Resolved]
  - Restlessness [Recovering/Resolving]
  - Blood pressure increased [Recovered/Resolved]
  - Abdominal pain upper [Recovered/Resolved]
  - Insomnia [Recovered/Resolved]
  - Angina pectoris [Not Recovered/Not Resolved]
  - Palpitations [Recovered/Resolved]
  - Blood pressure systolic increased [Unknown]
  - Nausea [Recovered/Resolved]

NARRATIVE: CASE EVENT DATE: 20210804
